FAERS Safety Report 9134880 (Version 2)
Quarter: 2013Q2

REPORT INFORMATION
  Report Type: Spontaneous
  Country: NL (occurrence: NL)
  Receive Date: 20130304
  Receipt Date: 20130410
  Transmission Date: 20140414
  Serious: Yes (Life-Threatening, Hospitalization, Other)
  Sender: FDA-Public Use
  Company Number: NL-PFIZER INC-2013074223

PATIENT
  Age: 30 Year
  Sex: Male
  Weight: 75 kg

DRUGS (1)
  1. CHAMPIX [Suspect]
     Indication: SMOKING CESSATION THERAPY
     Dosage: 1 MG, 2X/DAY
     Dates: start: 20121215, end: 20130217

REACTIONS (6)
  - Agitation [Recovered/Resolved]
  - Catatonia [Recovered/Resolved]
  - Aggression [Unknown]
  - Stress [Unknown]
  - Poor quality sleep [Unknown]
  - Caffeine consumption [Unknown]
